FAERS Safety Report 17548015 (Version 6)
Quarter: 2020Q4

REPORT INFORMATION
  Report Type: Report from Study
  Country: None (occurrence: US)
  Receive Date: 20200316
  Receipt Date: 20201124
  Transmission Date: 20210113
  Serious: Yes (Hospitalization, Other)
  Sender: FDA-Public Use
  Company Number: US-ABBVIE-20K-163-3318436-00

PATIENT
  Age: 64 Year
  Sex: Male
  Weight: 59.02 kg

DRUGS (5)
  1. HUMIRA [Suspect]
     Active Substance: ADALIMUMAB
     Route: 058
  2. HUMIRA [Suspect]
     Active Substance: ADALIMUMAB
     Indication: CROHN^S DISEASE
     Route: 058
     Dates: start: 20200304, end: 2020
  3. HUMIRA [Suspect]
     Active Substance: ADALIMUMAB
     Route: 058
  4. MYRBETRIQ [Concomitant]
     Active Substance: MIRABEGRON
     Indication: PRODUCT USED FOR UNKNOWN INDICATION
     Dates: start: 20200128
  5. HUMIRA [Suspect]
     Active Substance: ADALIMUMAB
     Route: 058
     Dates: start: 20200401

REACTIONS (15)
  - Increased tendency to bruise [Not Recovered/Not Resolved]
  - Oral herpes [Recovering/Resolving]
  - Dysphonia [Not Recovered/Not Resolved]
  - Fistula inflammation [Recovering/Resolving]
  - Blood blister [Recovering/Resolving]
  - Anal fissure [Recovering/Resolving]
  - Perirectal abscess [Unknown]
  - Contusion [Not Recovered/Not Resolved]
  - Fistula discharge [Recovering/Resolving]
  - Anal fissure haemorrhage [Not Recovered/Not Resolved]
  - Chest discomfort [Recovering/Resolving]
  - Fistula [Not Recovered/Not Resolved]
  - Blister rupture [Recovering/Resolving]
  - Unevaluable event [Unknown]
  - Pain [Not Recovered/Not Resolved]

NARRATIVE: CASE EVENT DATE: 2020
